FAERS Safety Report 5856543-7 (Version None)
Quarter: 2008Q3

REPORT INFORMATION
  Report Type: 
  Country: None (occurrence: None)
  Receive Date: 20080821
  Receipt Date: 20080812
  Transmission Date: 20090109
  Serious: Yes (Other)
  Sender: FDA-Public Use
  Company Number: 1000000330

PATIENT
  Age: 84 Year
  Sex: Female
  Weight: 57 kg

DRUGS (5)
  1. MEMANTINE HCL [Suspect]
     Indication: DEMENTIA
     Dosage: 10 MG (10 MG, 1 IN 1D), ORAL
     Route: 048
     Dates: start: 20080530
  2. MARCUMAR [Suspect]
     Indication: AORTIC VALVE REPLACEMENT
     Dosage: 0.5-1 TABLET (1 IN 1 D),ORAL
     Route: 048
     Dates: start: 19950101
  3. ARICEPT [Concomitant]
  4. TRIAMTERENE AND HYDROCHLOROTHIAZIDE [Concomitant]
  5. SIMVASTATIN [Concomitant]

REACTIONS (5)
  - DRUG INTERACTION [None]
  - INFLAMMATION [None]
  - PRURITUS [None]
  - RASH [None]
  - VASCULITIS [None]
